FAERS Safety Report 7634240-5 (Version None)
Quarter: 2011Q3

REPORT INFORMATION
  Report Type: 
  Country: None (occurrence: None)
  Receive Date: 20110725
  Receipt Date: 20110721
  Transmission Date: 20111222
  Serious: Yes (Other)
  Sender: FDA-Public Use
  Company Number: US-AMGEN-USASP2011037155

PATIENT
  Age: 80 Year
  Sex: Male

DRUGS (2)
  1. NPLATE [Suspect]
     Indication: THROMBOCYTOPENIA
     Dosage: 10 A?G/KG, UNK
     Dates: start: 20100728, end: 20110405
  2. PREDNISONE [Concomitant]
     Dosage: 50 MG, UNK

REACTIONS (4)
  - ANTI-PLATELET ANTIBODY NEGATIVE [None]
  - SPLENECTOMY [None]
  - PLATELET COUNT DECREASED [None]
  - SPLENOMEGALY [None]
